FAERS Safety Report 18719355 (Version 2)
Quarter: 2021Q1

REPORT INFORMATION
  Report Type: Spontaneous
  Country: US (occurrence: US)
  Receive Date: 20210108
  Receipt Date: 20210205
  Transmission Date: 20210419
  Serious: Yes (Life-Threatening, Hospitalization, Other)
  Sender: FDA-Public Use
  Company Number: US-VALIDUS PHARMACEUTICALS LLC-US-2021VAL000005

PATIENT
  Age: 63 Year
  Sex: Female

DRUGS (6)
  1. FLECAINIDE [Suspect]
     Active Substance: FLECAINIDE
     Indication: ATRIAL FIBRILLATION
     Dosage: 100 MG, BID
     Route: 065
  2. TRIAMTERENE AND HYDROCHLOROTHIAZIDE [Concomitant]
     Active Substance: HYDROCHLOROTHIAZIDE\TRIAMTERENE
     Indication: PRODUCT USED FOR UNKNOWN INDICATION
     Dosage: UNK
  3. METOPROLOL. [Concomitant]
     Active Substance: METOPROLOL
     Indication: PRODUCT USED FOR UNKNOWN INDICATION
     Dosage: UNK
  4. DILTIAZEM HYDROCHLORIDE. [Suspect]
     Active Substance: DILTIAZEM HYDROCHLORIDE
     Indication: ATRIAL FIBRILLATION
     Dosage: UNK
     Route: 065
  5. DILTIAZEM HYDROCHLORIDE. [Suspect]
     Active Substance: DILTIAZEM HYDROCHLORIDE
     Indication: HYPERTENSION
  6. FUROSEMIDE. [Suspect]
     Active Substance: FUROSEMIDE
     Indication: ACUTE KIDNEY INJURY
     Dosage: UNK
     Route: 065

REACTIONS (15)
  - Bundle branch block left [Recovering/Resolving]
  - Drug hypersensitivity [Recovering/Resolving]
  - Electrocardiogram QRS complex prolonged [Recovering/Resolving]
  - Toxicity to various agents [Recovering/Resolving]
  - Diarrhoea [Recovering/Resolving]
  - Hyponatraemia [Recovering/Resolving]
  - Heart rate decreased [Recovering/Resolving]
  - Acute kidney injury [Recovering/Resolving]
  - Hypotension [Unknown]
  - Atrial fibrillation [Recovering/Resolving]
  - Sinus bradycardia [Recovering/Resolving]
  - Atrioventricular block first degree [Recovering/Resolving]
  - Hypokalaemia [Recovering/Resolving]
  - Ventricular tachycardia [Recovering/Resolving]
  - Asthenia [Recovering/Resolving]
